FAERS Safety Report 14735646 (Version 1)
Quarter: 2018Q2

REPORT INFORMATION
  Report Type: Spontaneous
  Country: US (occurrence: US)
  Receive Date: 20180409
  Receipt Date: 20180409
  Transmission Date: 20180711
  Serious: No
  Sender: FDA-Public Use
  Company Number: US-PFIZER INC-2018142177

PATIENT
  Age: 50 Year
  Sex: Female

DRUGS (1)
  1. ELELYSO [Suspect]
     Active Substance: TALIGLUCERASE ALFA
     Dosage: UNK

REACTIONS (9)
  - White blood cell count increased [Unknown]
  - Haemoglobin increased [Unknown]
  - Neck pain [Unknown]
  - Musculoskeletal pain [Unknown]
  - Pain in extremity [Unknown]
  - Lymphocyte count increased [Unknown]
  - Red blood cell count increased [Unknown]
  - Haematocrit increased [Unknown]
  - Intention tremor [Unknown]
